FAERS Safety Report 8621873 (Version 6)
Quarter: 2013Q2

REPORT INFORMATION
  Report Type: Report from Study
  Country: JP (occurrence: JP)
  Receive Date: 20120604
  Receipt Date: 20130516
  Transmission Date: 20140414
  Serious: Yes (Other)
  Sender: FDA-Public Use
  Company Number: JP-009507513-2012SP027866

PATIENT
  Age: 67 Year
  Sex: Female
  Weight: 63 kg

DRUGS (9)
  1. PEGINTRON [Suspect]
     Indication: CHRONIC HEPATITIS C
     Dosage: 1.5 MICROGRAM PER KILOGRAM, QW
     Route: 058
     Dates: start: 20120419, end: 20120927
  2. REBETOL [Suspect]
     Indication: CHRONIC HEPATITIS C
     Dosage: 800 MG, QD
     Route: 048
     Dates: start: 20120419, end: 20120429
  3. REBETOL [Suspect]
     Dosage: 600 MG, QD
     Route: 048
     Dates: start: 20120430, end: 20120514
  4. REBETOL [Suspect]
     Dosage: 400 MG, QD
     Route: 048
     Dates: start: 20120517, end: 20121003
  5. TELAVIC [Suspect]
     Indication: CHRONIC HEPATITIS C
     Dosage: 750 MG, TID
     Route: 048
     Dates: start: 20120419, end: 20120514
  6. MAGMITT [Concomitant]
     Indication: CONSTIPATION
     Dosage: UPDATE (28MAY2012):FORMULATION: POR
     Route: 048
     Dates: start: 20120424
  7. GASMOTIN [Concomitant]
     Indication: CONSTIPATION
     Dosage: 15 MG, QD (FORMULATION POR)
     Route: 048
     Dates: start: 20120430
  8. AMOBAN [Concomitant]
     Indication: INSOMNIA
     Dosage: UPDATE (28MAY2012):DOSE: 5 MG/DAY, AS NEEDED
     Route: 048
     Dates: start: 20120423
  9. MYSLEE [Concomitant]
     Dosage: UPDATE (28MAY2012) DOSE: 10 MG/DAY, AS NEEDED
     Route: 048
     Dates: start: 20120424, end: 20120510

REACTIONS (2)
  - Erythema [Recovered/Resolved]
  - Blister [Recovered/Resolved]
